FAERS Safety Report 8111970-2 (Version None)
Quarter: 2012Q1

REPORT INFORMATION
  Report Type: 
  Country: None (occurrence: None)
  Receive Date: 20120203
  Receipt Date: 20111202
  Transmission Date: 20120608
  Serious: No
  Sender: FDA-Public Use
  Company Number: US-GLAXOSMITHKLINE-A0956474A

PATIENT
  Age: 70 Year
  Sex: Male

DRUGS (2)
  1. ARIXTRA [Suspect]
     Indication: PULMONARY EMBOLISM
     Dosage: 10MG PER DAY
     Route: 058
     Dates: start: 20110401
  2. NO CONCURRENT MEDICATION [Concomitant]

REACTIONS (2)
  - WEIGHT DECREASED [None]
  - FALL [None]
